FAERS Safety Report 22023002 (Version 3)
Quarter: 2023Q2

REPORT INFORMATION
  Report Type: Report from Study
  Country: ES (occurrence: ES)
  Receive Date: 20230222
  Receipt Date: 20230619
  Transmission Date: 20230722
  Serious: Yes (Hospitalization, Other)
  Sender: FDA-Public Use
  Company Number: ES-BRISTOL-MYERS SQUIBB COMPANY-2022-119148

PATIENT
  Age: 67 Year
  Sex: Male
  Weight: 74 kg

DRUGS (12)
  1. IPILIMUMAB [Suspect]
     Active Substance: IPILIMUMAB
     Indication: Colorectal cancer
     Dosage: DRUG INTERRUPTED?MOST RECENT DOSE OF IPILIMUMAB ON 10-AUG-2022
     Route: 042
     Dates: start: 20220608
  2. TRAMETINIB [Suspect]
     Active Substance: TRAMETINIB
     Indication: Colorectal cancer
     Dosage: DRUG INTERRUPTED?MOST RECENT DOSE 1 MG RECEIVED ON 27-SEP-2022
     Route: 048
     Dates: start: 20220608
  3. ALBUTEROL [Concomitant]
     Active Substance: ALBUTEROL
     Indication: Product used for unknown indication
     Route: 055
     Dates: start: 201911
  4. PREDNISONE [Concomitant]
     Active Substance: PREDNISONE
     Indication: Dermatitis psoriasiform
     Route: 048
     Dates: start: 20220908, end: 20220915
  5. PREDNISONE [Concomitant]
     Active Substance: PREDNISONE
     Route: 048
     Dates: start: 20220916, end: 20220922
  6. INDACATEROL [Concomitant]
     Active Substance: INDACATEROL
     Indication: Product used for unknown indication
     Route: 055
     Dates: start: 20211028
  7. GLYCOPYRRONIUM\INDACATEROL [Concomitant]
     Active Substance: GLYCOPYRRONIUM\INDACATEROL
     Indication: Product used for unknown indication
     Route: 055
     Dates: start: 20211028
  8. CEFTRIAXONE [Concomitant]
     Active Substance: CEFTRIAXONE
     Indication: Urinary tract infection
     Route: 042
     Dates: start: 20220926, end: 20220928
  9. POSITON [NEOMYCIN SULFATE;NYSTATIN;TRIAMCINOLONE ACETONIDE] [Concomitant]
     Indication: Rash
     Route: 061
     Dates: start: 20220713
  10. TRANICLONE TOPICAL EMULSION [Concomitant]
     Indication: Rash
     Route: 061
     Dates: start: 20220701
  11. CICAPLAST [Concomitant]
     Indication: Paronychia
     Dosage: 1 UNIT NOT SPECIFIED
     Route: 061
     Dates: start: 20220921
  12. EBASTEL FORTE [Concomitant]
     Indication: Product used for unknown indication
     Route: 048
     Dates: start: 20220704, end: 20221010

REACTIONS (1)
  - Erythrodermic psoriasis [Recovered/Resolved]

NARRATIVE: CASE EVENT DATE: 20220927
